FAERS Safety Report 19801147 (Version 2)
Quarter: 2021Q3

REPORT INFORMATION
  Report Type: Report from Study
  Country: US (occurrence: US)
  Receive Date: 20210908
  Receipt Date: 20210922
  Transmission Date: 20211014
  Serious: Yes (Other)
  Sender: FDA-Public Use
  Company Number: US-SA-2021SA148550

PATIENT
  Age: 67 Year
  Sex: Female

DRUGS (2)
  1. DUPILUMAB [Suspect]
     Active Substance: DUPILUMAB
     Indication: DERMATITIS ATOPIC
     Dosage: 300 MG, QOW
     Route: 058
     Dates: start: 20200918, end: 20210902
  2. CLOBETASOL [CLOBETASOL PROPIONATE] [Concomitant]
     Dosage: UNK

REACTIONS (8)
  - Inflammation [Unknown]
  - Skin exfoliation [Unknown]
  - Paraesthesia [Unknown]
  - Dermatitis atopic [Recovering/Resolving]
  - Erythema [Recovered/Resolved]
  - Pain in extremity [Unknown]
  - Invasive ductal breast carcinoma [Recovering/Resolving]
  - Peripheral swelling [Recovered/Resolved]

NARRATIVE: CASE EVENT DATE: 202108
